FAERS Safety Report 16714359 (Version 1)
Quarter: 2019Q3

REPORT INFORMATION
  Report Type: Spontaneous
  Country: CA (occurrence: CA)
  Receive Date: 20190819
  Receipt Date: 20190819
  Transmission Date: 20191004
  Serious: Yes (Other)
  Sender: FDA-Public Use
  Company Number: CA-CONCORDIA PHARMACEUTICALS INC.-GSH201908-001870

PATIENT
  Sex: Female
  Weight: 68.9 kg

DRUGS (5)
  1. LEFLUNOMIDE. [Suspect]
     Active Substance: LEFLUNOMIDE
     Dosage: DAILY DOSE:10-20MG  QD
     Route: 065
  2. SULFASALAZINE. [Suspect]
     Active Substance: SULFASALAZINE
  3. BARICITINIB [Suspect]
     Active Substance: BARICITINIB
     Route: 065
  4. METHOTREXATE. [Suspect]
     Active Substance: METHOTREXATE
     Route: 058
  5. HYDROXYCHLOROQUINE [Suspect]
     Active Substance: HYDROXYCHLOROQUINE
     Indication: PRODUCT USED FOR UNKNOWN INDICATION
     Route: 065

REACTIONS (10)
  - Vomiting [Unknown]
  - Abdominal pain [Unknown]
  - Headache [Unknown]
  - Unevaluable event [Unknown]
  - Diarrhoea [Unknown]
  - Hepatitis [Unknown]
  - Eye pruritus [Unknown]
  - Cough [Unknown]
  - Nausea [Unknown]
  - Drug ineffective [Unknown]
